FAERS Safety Report 4264505-9 (Version None)
Quarter: 2004Q1

REPORT INFORMATION
  Report Type: 
  Country: None (occurrence: None)
  Receive Date: 20040104
  Receipt Date: 20031223
  Transmission Date: 20041129
  Serious: Yes (Other)
  Sender: FDA-Public Use
  Company Number: US-JNJFOC-20031204955

PATIENT
  Age: 57 Year
  Sex: Female
  Weight: 51.7101 kg

DRUGS (6)
  1. REMICADE [Suspect]
     Indication: CROHN'S DISEASE
     Dosage: SEE IMAGE
     Route: 042
     Dates: start: 20030801
  2. REMICADE [Suspect]
     Indication: CROHN'S DISEASE
     Dosage: SEE IMAGE
     Route: 042
     Dates: start: 20030901
  3. PENTASA [Concomitant]
  4. ENTOCORT (BUDESONIDE) [Concomitant]
  5. PREDNAZONE (PREDNISOLONE) [Concomitant]
  6. LOMOTIL [Concomitant]

REACTIONS (1)
  - ANAPHYLACTIC SHOCK [None]
